FAERS Safety Report 4568369-5 (Version None)
Quarter: 2005Q1

REPORT INFORMATION
  Report Type: 
  Country: None (occurrence: None)
  Receive Date: 20050131
  Receipt Date: 20050117
  Transmission Date: 20050727
  Serious: Yes (Death, Other)
  Sender: FDA-Public Use
  Company Number: 2004-00839

PATIENT
  Age: 73 Year
  Sex: Male

DRUGS (1)
  1. VELCADE [Suspect]
     Indication: MULTIPLE MYELOMA
     Dates: start: 20040101

REACTIONS (5)
  - ANOREXIA [None]
  - DEPRESSION [None]
  - PAIN [None]
  - PNEUMONIA [None]
  - POLYNEUROPATHY [None]
